FAERS Safety Report 21257392 (Version 1)
Quarter: 2022Q3

REPORT INFORMATION
  Report Type: Report from Study
  Country: MX (occurrence: MX)
  Receive Date: 20220826
  Receipt Date: 20220826
  Transmission Date: 20221026
  Serious: Yes (Other)
  Sender: FDA-Public Use
  Company Number: MX-TAKEDA-2022TJP071387

PATIENT
  Age: 79 Year
  Sex: Female
  Weight: 75 kg

DRUGS (4)
  1. METFORMIN HYDROCHLORIDE\PIOGLITAZONE HYDROCHLORIDE [Suspect]
     Active Substance: METFORMIN HYDROCHLORIDE\PIOGLITAZONE HYDROCHLORIDE
     Indication: Diabetes mellitus
     Dosage: UNK UNK, QD
     Route: 048
     Dates: start: 2011
  2. DULOXETINE [Concomitant]
     Active Substance: DULOXETINE
     Indication: Product used for unknown indication
     Dosage: UNK
  3. Igef [Concomitant]
     Indication: Product used for unknown indication
     Dosage: UNK
  4. CALCIUM DOBESILATE;DIOSMIN;HESPERIDIN [Concomitant]
     Indication: Product used for unknown indication
     Dosage: UNK

REACTIONS (8)
  - Hypoglycaemia [Recovered/Resolved]
  - Fall [Unknown]
  - Clavicle fracture [Unknown]
  - Forearm fracture [Unknown]
  - Fall [Unknown]
  - Fall [Unknown]
  - Bone demineralisation [Unknown]
  - Rheumatic disorder [Unknown]

NARRATIVE: CASE EVENT DATE: 20180101
